APPROVED DRUG PRODUCT: GENTAMICIN SULFATE
Active Ingredient: GENTAMICIN SULFATE
Strength: EQ 10MG BASE/ML
Dosage Form/Route: INJECTABLE;INJECTION
Application: A062356 | Product #001
Applicant: FRESENIUS KABI USA LLC
Approved: Mar 4, 1982 | RLD: No | RS: No | Type: DISCN